FAERS Safety Report 18767957 (Version 3)
Quarter: 2021Q1

REPORT INFORMATION
  Report Type: Spontaneous
  Country: CA (occurrence: CA)
  Receive Date: 20210121
  Receipt Date: 20210305
  Transmission Date: 20210419
  Serious: Yes (Other)
  Sender: FDA-Public Use
  Company Number: CA-PFIZER INC-2021039573

PATIENT
  Age: 81 Year
  Sex: Female

DRUGS (1)
  1. RUXIENCE [Suspect]
     Active Substance: RITUXIMAB-PVVR
     Indication: RHEUMATOID ARTHRITIS
     Dosage: 1000 MG, 2 WEEKS
     Route: 042

REACTIONS (4)
  - Restlessness [Unknown]
  - Off label use [Unknown]
  - Dementia [Unknown]
  - Product use issue [Unknown]
